FAERS Safety Report 7538938-9 (Version None)
Quarter: 2011Q2

REPORT INFORMATION
  Report Type: 
  Country: None (occurrence: None)
  Receive Date: 20110603
  Receipt Date: 20110524
  Transmission Date: 20111010
  Serious: Yes (Hospitalization)
  Sender: FDA-Public Use
  Company Number: 1000020735

PATIENT
  Age: 67 Year
  Sex: Female
  Weight: 75 kg

DRUGS (6)
  1. CITALOPRAM HYDROBROMIDE [Suspect]
     Indication: DEPRESSION
     Dosage: 20 MG (20 MG, 1 IN 1 D), ORAL
     Route: 048
     Dates: start: 20091117, end: 20091204
  2. RYTHMONORM (PROPAFENONE HYDROCHLORIDE) [Concomitant]
  3. KALINOR (POTASSIUM CHLORIDE) [Concomitant]
  4. CONCOR COR (BISOPROLOL FUMARATE) [Concomitant]
  5. LOSARTIC PLUS (LOSARTAN, HYDROCHLOROTHIAZIDE) [Concomitant]
  6. FUROSEMIDE [Concomitant]

REACTIONS (1)
  - PARKINSONISM [None]
